FAERS Safety Report 8258106-5 (Version None)
Quarter: 2012Q2

REPORT INFORMATION
  Report Type: 
  Country: None (occurrence: None)
  Receive Date: 20120404
  Receipt Date: 20120330
  Transmission Date: 20120825
  Serious: Yes (Other)
  Sender: FDA-Public Use
  Company Number: US-AMGEN-USASP2012009480

PATIENT
  Age: 65 Year
  Sex: Female

DRUGS (1)
  1. EPOGEN [Suspect]
     Indication: HAEMORRHAGE
     Dosage: 20000 IU, 3 TIMES/WK

REACTIONS (1)
  - DRUG INEFFECTIVE [None]
